FAERS Safety Report 13308863 (Version 1)
Quarter: 2017Q1

REPORT INFORMATION
  Report Type: Spontaneous
  Country: US (occurrence: US)
  Receive Date: 20170308
  Receipt Date: 20170308
  Transmission Date: 20170428
  Serious: Yes (Hospitalization)
  Sender: FDA-Public Use
  Company Number: None

PATIENT
  Age: 61 Year
  Sex: Male
  Weight: 125.9 kg

DRUGS (15)
  1. AUGMENTIN [Concomitant]
     Active Substance: AMOXICILLIN\CLAVULANATE POTASSIUM
  2. PERCOCET [Concomitant]
     Active Substance: ACETAMINOPHEN\OXYCODONE HYDROCHLORIDE
  3. TRAMADOL. [Concomitant]
     Active Substance: TRAMADOL
  4. ALPRAZOLAM. [Concomitant]
     Active Substance: ALPRAZOLAM
  5. VITAMIN D3 [Concomitant]
     Active Substance: CHOLECALCIFEROL
  6. ALLEGRA [Concomitant]
     Active Substance: FEXOFENADINE HYDROCHLORIDE
  7. ASPIRIN. [Concomitant]
     Active Substance: ASPIRIN
  8. CRESTOR [Concomitant]
     Active Substance: ROSUVASTATIN CALCIUM
  9. SYNJARDY [Suspect]
     Active Substance: EMPAGLIFLOZIN\METFORMIN HYDROCHLORIDE
     Indication: TYPE 2 DIABETES MELLITUS
     Route: 048
     Dates: start: 20170216, end: 20170307
  10. WELLBUTRIN XL [Concomitant]
     Active Substance: BUPROPION HYDROCHLORIDE
  11. LANTUS [Concomitant]
     Active Substance: INSULIN GLARGINE
  12. FOLIC ACID. [Concomitant]
     Active Substance: FOLIC ACID
  13. HYZAAR [Concomitant]
     Active Substance: HYDROCHLOROTHIAZIDE\LOSARTAN POTASSIUM
  14. VICTOZA [Concomitant]
     Active Substance: LIRAGLUTIDE
  15. TRAZODONE [Concomitant]
     Active Substance: TRAZODONE HYDROCHLORIDE

REACTIONS (1)
  - Diabetic ketoacidosis [None]

NARRATIVE: CASE EVENT DATE: 20170307
